FAERS Safety Report 9926037 (Version 3)
Quarter: 2014Q1

REPORT INFORMATION
  Report Type: Spontaneous
  Country: IT (occurrence: IT)
  Receive Date: 20140226
  Receipt Date: 20140306
  Transmission Date: 20141002
  Serious: Yes (Death)
  Sender: FDA-Public Use
  Company Number: PHHY2014IT023482

PATIENT
  Age: 74 Year
  Sex: Male

DRUGS (4)
  1. TASIGNA [Suspect]
     Indication: CHRONIC MYELOID LEUKAEMIA
     Dosage: 400 MG, DAILY
     Route: 048
     Dates: start: 20070122
  2. GLUCOPHAGE [Concomitant]
  3. INSULIN [Concomitant]
  4. OMNIC [Concomitant]

REACTIONS (1)
  - Cardiac arrest [Fatal]
